FAERS Safety Report 4397769-1 (Version None)
Quarter: 2004Q3

REPORT INFORMATION
  Report Type: 
  Country: None (occurrence: None)
  Receive Date: 20040713
  Receipt Date: 20040630
  Transmission Date: 20050211
  Serious: Yes (Disabling, Other)
  Sender: FDA-Public Use
  Company Number: 2004218738US

PATIENT
  Age: 67 Year
  Sex: Female
  Weight: 77.1 kg

DRUGS (7)
  1. AROMASIN [Suspect]
     Indication: BREAST CANCER STAGE II
     Dosage: 25 MG, QD,ORAL
     Route: 048
     Dates: end: 20040331
  2. ATENOLOL [Concomitant]
  3. LIPITOR [Concomitant]
  4. FOSAMAX [Concomitant]
  5. AVAPRO [Concomitant]
  6. ASPIRIN [Concomitant]
  7. HYDROCHLOROTHIAZIDE [Concomitant]

REACTIONS (1)
  - RETINAL DISORDER [None]
